FAERS Safety Report 23275168 (Version 1)
Quarter: 2023Q4

REPORT INFORMATION
  Report Type: Spontaneous
  Country: US (occurrence: US)
  Receive Date: 20231208
  Receipt Date: 20231208
  Transmission Date: 20240110
  Serious: No
  Sender: FDA-Public Use
  Company Number: US-Calliditas-2023CAL01538

PATIENT
  Age: 70 Year
  Sex: Male
  Weight: 112.5 kg

DRUGS (1)
  1. TARPEYO [Suspect]
     Active Substance: BUDESONIDE
     Indication: IgA nephropathy
     Dosage: 16 MG (4MG CAPSULES) ONCE DAILY
     Route: 048
     Dates: start: 20231017

REACTIONS (3)
  - Fluid retention [Unknown]
  - Oedema peripheral [Unknown]
  - Muscle spasms [Unknown]
